FAERS Safety Report 5358123-9 (Version None)
Quarter: 2007Q2

REPORT INFORMATION
  Report Type: 
  Country: None (occurrence: None)
  Receive Date: 20070530
  Receipt Date: 20060828
  Transmission Date: 20071010
  Serious: Yes (Other)
  Sender: FDA-Public Use
  Company Number: US200606000067

PATIENT
  Age: 34 Year
  Sex: Female
  Weight: 83.9 kg

DRUGS (1)
  1. ZYPREXA [Suspect]
     Dates: start: 20010101, end: 20050101

REACTIONS (5)
  - BLOOD CHOLESTEROL INCREASED [None]
  - DIABETES MELLITUS [None]
  - HYPERGLYCAEMIC HYPEROSMOLAR NONKETOTIC SYNDROME [None]
  - HYPERTENSION [None]
  - METABOLIC DISORDER [None]
